FAERS Safety Report 8775261 (Version 1)
Quarter: 2012Q4

REPORT INFORMATION
  Report Type: 
  Country: US (occurrence: US)
  Receive Date: 20120910
  Receipt Date: 20120910
  Transmission Date: 20130627
  Serious: Yes (Other)
  Sender: FDA-Public Use
  Company Number: US-AMGEN-USASP2012056330

PATIENT
  Age: 29 Year
  Sex: Female

DRUGS (1)
  1. ENBREL [Suspect]
     Indication: RHEUMATOID ARTHRITIS
     Dosage: 50 mg, UNK
     Route: 058
     Dates: start: 20040419

REACTIONS (4)
  - Gestational diabetes [Unknown]
  - Amniotic fluid volume decreased [Unknown]
  - Umbilical cord abnormality [Unknown]
  - Breech presentation [Unknown]
